FAERS Safety Report 9789848 (Version 2)
Quarter: 2014Q1

REPORT INFORMATION
  Report Type: Spontaneous
  Country: US (occurrence: None)
  Receive Date: 20131227
  Receipt Date: 20140106
  Transmission Date: 20141002
  Serious: Yes (Disabling)
  Sender: FDA-Public Use
  Company Number: 2013AP010749

PATIENT
  Age: 19 Year
  Sex: Male

DRUGS (16)
  1. FLUVOXAMINE MALEATE [Suspect]
     Indication: GENERALISED ANXIETY DISORDER
  2. FLUVOXAMINE MALEATE [Suspect]
     Indication: OBSESSIVE-COMPULSIVE DISORDER
  3. METHYLPHENIDATE [Suspect]
     Indication: ATTENTION DEFICIT/HYPERACTIVITY DISORDER
  4. LISDEXAMFETAMINE [Suspect]
     Indication: ATTENTION DEFICIT/HYPERACTIVITY DISORDER
  5. AMFETAMINE MIXED SALTS [Suspect]
     Indication: ATTENTION DEFICIT/HYPERACTIVITY DISORDER
  6. ANTIBIOTICS [Concomitant]
  7. QUETIAPINE [Concomitant]
  8. FLUOXETINE [Concomitant]
  9. FLUOXETINE [Concomitant]
  10. FLUOXETINE [Concomitant]
  11. FLUOXETINE [Concomitant]
  12. FLUOXETINE [Concomitant]
  13. FLUOXETINE [Concomitant]
  14. FLUOXETINE [Concomitant]
  15. FLUOXETINE [Concomitant]
  16. GUANFACINE HYDROCHLORIDE [Concomitant]

REACTIONS (15)
  - Dizziness [None]
  - Palpitations [None]
  - Sedation [None]
  - Decreased appetite [None]
  - Condition aggravated [None]
  - Obsessive-compulsive disorder [None]
  - Anxiety [None]
  - Tic [None]
  - Weight decreased [None]
  - Drug ineffective [None]
  - Insomnia [None]
  - Excessive eye blinking [None]
  - Mood altered [None]
  - Drug administration error [None]
  - Abdominal discomfort [None]
